FAERS Safety Report 21875262 (Version 1)
Quarter: 2023Q1

REPORT INFORMATION
  Report Type: Spontaneous
  Country: IS (occurrence: IS)
  Receive Date: 20230117
  Receipt Date: 20230117
  Transmission Date: 20230417
  Serious: Yes (Hospitalization)
  Sender: FDA-Public Use
  Company Number: None

PATIENT
  Sex: Male

DRUGS (2)
  1. IMBRUVICA [Suspect]
     Active Substance: IBRUTINIB
     Indication: Chronic lymphocytic leukaemia
     Dosage: 1 TABLET DAILY
     Route: 048
     Dates: start: 202110
  2. IMFINZI [Concomitant]
     Active Substance: DURVALUMAB
     Indication: Lung neoplasm malignant
     Route: 065
     Dates: start: 202209

REACTIONS (2)
  - Lymphocytic infiltration [Not Recovered/Not Resolved]
  - Granulomatosis with polyangiitis [Not Recovered/Not Resolved]

NARRATIVE: CASE EVENT DATE: 20221104
